FAERS Safety Report 19471890 (Version 2)
Quarter: 2021Q3

REPORT INFORMATION
  Report Type: Spontaneous
  Country: JP (occurrence: JP)
  Receive Date: 20210628
  Receipt Date: 20210928
  Transmission Date: 20211014
  Serious: Yes (Death, Hospitalization, Other)
  Sender: FDA-Public Use
  Company Number: JP-BRISTOL-MYERS SQUIBB COMPANY-BMS-2021-061429

PATIENT
  Age: 64 Year
  Sex: Male

DRUGS (3)
  1. TEMSIROLIMUS. [Suspect]
     Active Substance: TEMSIROLIMUS
     Indication: RENAL CANCER
     Dosage: UNK
     Route: 065
  2. OPDIVO [Suspect]
     Active Substance: NIVOLUMAB
     Indication: RENAL CELL CARCINOMA
     Route: 065
  3. YERVOY [Suspect]
     Active Substance: IPILIMUMAB
     Indication: RENAL CELL CARCINOMA
     Route: 065

REACTIONS (5)
  - Eating disorder [Recovering/Resolving]
  - Duodenal obstruction [Not Recovered/Not Resolved]
  - Interstitial lung disease [Recovering/Resolving]
  - Vomiting [Unknown]
  - Malignant neoplasm progression [Fatal]
